FAERS Safety Report 18874449 (Version 1)
Quarter: 2021Q1

REPORT INFORMATION
  Report Type: Report from Study
  Country: US (occurrence: US)
  Receive Date: 20210210
  Receipt Date: 20210210
  Transmission Date: 20210420
  Serious: Yes (Other)
  Sender: FDA-Public Use
  Company Number: US-JNJFOC-20210208114

PATIENT

DRUGS (2)
  1. CODEINE [Suspect]
     Active Substance: CODEINE
     Indication: PRODUCT USED FOR UNKNOWN INDICATION
     Route: 065
  2. ULTRAM [Suspect]
     Active Substance: TRAMADOL HYDROCHLORIDE
     Indication: PAIN
     Route: 065

REACTIONS (35)
  - Nausea [Unknown]
  - Insomnia [Unknown]
  - Vision blurred [Unknown]
  - Pruritus [Unknown]
  - Malaise [Unknown]
  - Adverse event [Unknown]
  - Angioedema [Unknown]
  - Urinary retention [Unknown]
  - Hallucination [Unknown]
  - Confusional state [Unknown]
  - Headache [Unknown]
  - Influenza like illness [Unknown]
  - Suicidal ideation [Unknown]
  - Withdrawal syndrome [Unknown]
  - Inadequate analgesia [Unknown]
  - Drug intolerance [Unknown]
  - Muscle twitching [Unknown]
  - Vomiting [Unknown]
  - Constipation [Unknown]
  - Depression [Unknown]
  - Somnolence [Unknown]
  - Orthostatic hypotension [Unknown]
  - Paraesthesia [Unknown]
  - Nightmare [Unknown]
  - Pyrexia [Unknown]
  - Formication [Unknown]
  - Dry mouth [Unknown]
  - Gastrooesophageal reflux disease [Unknown]
  - Dizziness [Unknown]
  - Anxiety [Unknown]
  - Tinnitus [Unknown]
  - Rash [Unknown]
  - Fatigue [Unknown]
  - Feeling jittery [Unknown]
  - Decreased appetite [Unknown]
